FAERS Safety Report 4748530-7 (Version None)
Quarter: 2005Q3

REPORT INFORMATION
  Report Type: 
  Country: None (occurrence: None)
  Receive Date: 20050818
  Receipt Date: 20050818
  Transmission Date: 20060218
  Serious: Yes (Life-Threatening, Hospitalization)
  Sender: FDA-Public Use
  Company Number: None

PATIENT
  Age: 64 Year
  Sex: Male
  Weight: 75 kg

DRUGS (2)
  1. LEPIRUDIN [Suspect]
     Indication: DEEP VEIN THROMBOSIS
     Dosage: TITRATED CONTINUOUS INFUSION INTRAVENOUS
     Route: 042
  2. LEPIRUDIN [Suspect]
     Indication: HEPARIN-INDUCED THROMBOCYTOPENIA
     Dosage: TITRATED CONTINUOUS INFUSION INTRAVENOUS
     Route: 042

REACTIONS (2)
  - ACTIVATED PARTIAL THROMBOPLASTIN TIME PROLONGED [None]
  - OESOPHAGEAL HAEMORRHAGE [None]
